FAERS Safety Report 9146463 (Version 3)
Quarter: 2013Q4

REPORT INFORMATION
  Report Type: Spontaneous
  Country: US (occurrence: US)
  Receive Date: 20130307
  Receipt Date: 20131216
  Transmission Date: 20140711
  Serious: No
  Sender: FDA-Public Use
  Company Number: US-PFIZER INC-2013076309

PATIENT
  Age: 55 Year
  Sex: Female
  Weight: 54.42 kg

DRUGS (2)
  1. CHANTIX [Suspect]
     Indication: SMOKING CESSATION THERAPY
     Dosage: UNK
     Dates: start: 201303, end: 2013
  2. TRILEPTAL [Concomitant]
     Indication: CONVULSION
     Dosage: UNK

REACTIONS (2)
  - Abnormal dreams [Unknown]
  - Constipation [Unknown]
